FAERS Safety Report 4961386-2 (Version None)
Quarter: 2006Q2

REPORT INFORMATION
  Report Type: 
  Country: None (occurrence: None)
  Receive Date: 20060403
  Receipt Date: 20060117
  Transmission Date: 20061013
  Serious: Yes (Hospitalization)
  Sender: FDA-Public Use
  Company Number: US-MERCK-0601USA02172

PATIENT
  Age: 81 Year
  Sex: Female
  Weight: 81 kg

DRUGS (13)
  1. VIOXX [Suspect]
     Indication: OSTEOARTHRITIS
     Route: 048
     Dates: start: 20010413, end: 20040220
  2. AMITRIPTYLINE HYDROCHLORIDE [Concomitant]
     Route: 065
  3. ATENOLOL [Concomitant]
     Route: 065
  4. BACTRIM DS [Concomitant]
     Route: 065
  5. CARTIA XT [Concomitant]
     Route: 065
  6. CIMETIDINE [Concomitant]
     Route: 065
  7. DILACOR XR [Concomitant]
     Route: 065
  8. DRIXORAL [Concomitant]
     Route: 065
  9. HYDROCODONE BITARTRATE [Concomitant]
     Route: 065
  10. LIPITOR [Concomitant]
     Route: 065
  11. NIASPAN [Concomitant]
     Route: 065
  12. REGLAN [Concomitant]
     Route: 065
  13. ZOLOFT [Concomitant]
     Route: 065

REACTIONS (22)
  - ANXIETY [None]
  - AORTIC ARTERIOSCLEROSIS [None]
  - AORTIC VALVE INCOMPETENCE [None]
  - BACK PAIN [None]
  - CAROTID ARTERY ATHEROMA [None]
  - CEREBROVASCULAR ACCIDENT [None]
  - CORONARY ARTERY DISEASE [None]
  - CYST [None]
  - DEPRESSION [None]
  - DILATATION ATRIAL [None]
  - DIVERTICULUM [None]
  - FEMALE GENITAL TRACT FISTULA [None]
  - GASTROOESOPHAGEAL REFLUX DISEASE [None]
  - HYPERLIPIDAEMIA [None]
  - HYPERTENSION [None]
  - LACUNAR INFARCTION [None]
  - MITRAL VALVE INCOMPETENCE [None]
  - MITRAL VALVE SCLEROSIS [None]
  - OSTEOARTHRITIS [None]
  - PAIN IN EXTREMITY [None]
  - TRANSIENT ISCHAEMIC ATTACK [None]
  - VENTRICULAR HYPERTROPHY [None]
